FAERS Safety Report 13110868 (Version 1)
Quarter: 2017Q1

REPORT INFORMATION
  Report Type: Spontaneous
  Country: SE (occurrence: SE)
  Receive Date: 20170112
  Receipt Date: 20170112
  Transmission Date: 20170428
  Serious: Yes (Hospitalization)
  Sender: FDA-Public Use
  Company Number: SE-TEVA-727090ISR

PATIENT
  Age: 21 Year
  Sex: Female

DRUGS (3)
  1. ATARAX [Suspect]
     Active Substance: HYDROXYZINE HYDROCHLORIDE
  2. ALVEDON [Suspect]
     Active Substance: ACETAMINOPHEN
  3. VENLAFAXINE [Suspect]
     Active Substance: VENLAFAXINE HYDROCHLORIDE

REACTIONS (4)
  - Analgesic drug level increased [Unknown]
  - Toxicity to various agents [Unknown]
  - Overdose [Unknown]
  - Intentional overdose [Unknown]
